FAERS Safety Report 23578527 (Version 1)
Quarter: 2024Q1

REPORT INFORMATION
  Report Type: Spontaneous
  Country: PT (occurrence: PT)
  Receive Date: 20240229
  Receipt Date: 20240229
  Transmission Date: 20240409
  Serious: Yes (Hospitalization, Other)
  Sender: FDA-Public Use
  Company Number: PT-CPL-004023

PATIENT
  Age: 77 Year
  Sex: Female

DRUGS (2)
  1. CELECOXIB [Suspect]
     Active Substance: CELECOXIB
     Indication: Arthralgia
  2. NAPROXEN [Suspect]
     Active Substance: NAPROXEN
     Indication: Arthralgia

REACTIONS (1)
  - Eosinophilic pneumonia acute [Recovered/Resolved]
